FAERS Safety Report 13112441 (Version 1)
Quarter: 2017Q1

REPORT INFORMATION
  Report Type: Spontaneous
  Country: IN (occurrence: US)
  Receive Date: 20170113
  Receipt Date: 20170113
  Transmission Date: 20170428
  Serious: No
  Sender: FDA-Public Use
  Company Number: IN-JNJFOC-20161114163

PATIENT

DRUGS (2)
  1. NIZORAL [Suspect]
     Active Substance: KETOCONAZOLE
     Indication: DANDRUFF
     Route: 061
  2. NIZORAL [Suspect]
     Active Substance: KETOCONAZOLE
     Route: 061

REACTIONS (2)
  - Skin odour abnormal [Unknown]
  - Drug ineffective [Unknown]
